FAERS Safety Report 7631849-X (Version None)
Quarter: 2011Q3

REPORT INFORMATION
  Report Type: 
  Country: None (occurrence: None)
  Receive Date: 20110725
  Receipt Date: 20110414
  Transmission Date: 20111222
  Serious: No
  Sender: FDA-Public Use
  Company Number: US-BRISTOL-MYERS SQUIBB COMPANY-15674666

PATIENT
  Age: 85 Year
  Sex: Male

DRUGS (3)
  1. COUMADIN [Suspect]
     Dosage: STARTED 2 YEARS AGO
  2. MONOPRIL [Concomitant]
     Indication: BLOOD PRESSURE
  3. INDERAL [Concomitant]
     Indication: BLOOD PRESSURE

REACTIONS (1)
  - DIZZINESS [None]
